FAERS Safety Report 9176715 (Version 1)
Quarter: 2013Q1

REPORT INFORMATION
  Report Type: Spontaneous
  Country: US (occurrence: US)
  Receive Date: 20130321
  Receipt Date: 20130321
  Transmission Date: 20140127
  Serious: No
  Sender: FDA-Public Use
  Company Number: US-MYLANLABS-2012S1004404

PATIENT
  Age: 53 Year
  Sex: Female
  Weight: 92.53 kg

DRUGS (8)
  1. AMLODIPINE BESYLATE [Suspect]
     Indication: HYPERTENSION
     Route: 048
  2. ACTOS [Concomitant]
  3. ASA [Concomitant]
  4. COREG [Concomitant]
  5. COUMADIN [Concomitant]
  6. COZAAR [Concomitant]
  7. LANTUS [Concomitant]
  8. PLAVIX [Concomitant]

REACTIONS (2)
  - Cough [Recovered/Resolved]
  - Oedema [Recovered/Resolved]
